FAERS Safety Report 16047580 (Version 1)
Quarter: 2019Q1

REPORT INFORMATION
  Report Type: Spontaneous
  Country: DE (occurrence: DE)
  Receive Date: 20190307
  Receipt Date: 20190307
  Transmission Date: 20190418
  Serious: Yes (Hospitalization, Other)
  Sender: FDA-Public Use
  Company Number: PHHY2019DE047731

PATIENT
  Age: 72 Year
  Sex: Female
  Weight: 84 kg

DRUGS (25)
  1. CARBOPLATIN. [Suspect]
     Active Substance: CARBOPLATIN
     Dosage: DOSAGES BETWEEN 350 MG AND 510 MG
     Route: 042
     Dates: start: 20150622, end: 20151008
  2. PACLITAXEL. [Suspect]
     Active Substance: PACLITAXEL
     Dosage: 250 MG, Q3W
     Route: 042
     Dates: start: 20150825
  3. BEVACIZUMAB. [Suspect]
     Active Substance: BEVACIZUMAB
     Dosage: 1350 MG, Q3W
     Route: 042
     Dates: start: 20151008
  4. RANITIDIN [Concomitant]
     Active Substance: RANITIDINE HYDROCHLORIDE
     Indication: NAUSEA
     Dosage: 1 DF, QD
     Route: 042
     Dates: start: 20150621, end: 20151008
  5. FUROSEMID [Concomitant]
     Active Substance: FUROSEMIDE
     Indication: OEDEMA
     Dosage: 20 MG, QD
     Route: 048
     Dates: start: 20150622, end: 20151008
  6. CARBOPLATIN. [Suspect]
     Active Substance: CARBOPLATIN
     Dosage: 470 MG, Q3W
     Route: 042
     Dates: start: 20150803
  7. CARBOPLATIN. [Suspect]
     Active Substance: CARBOPLATIN
     Dosage: 265 MG, Q3W
     Route: 042
     Dates: start: 20150803
  8. CARBOPLATIN. [Suspect]
     Active Substance: CARBOPLATIN
     Dosage: 375 MG, Q3W
     Route: 042
     Dates: start: 20150825
  9. BEVACIZUMAB. [Suspect]
     Active Substance: BEVACIZUMAB
     Indication: OVARIAN EPITHELIAL CANCER
     Dosage: 1260 MG, Q3W
     Route: 042
     Dates: start: 20150622
  10. FENISTIL [Concomitant]
     Active Substance: DIMETHINDENE
     Indication: NAUSEA
     Dosage: 1 DF, QD
     Route: 042
     Dates: start: 20150621, end: 20151008
  11. PACLITAXEL. [Suspect]
     Active Substance: PACLITAXEL
     Indication: OVARIAN EPITHELIAL CANCER
     Dosage: 255 MG, Q3W
     Route: 042
     Dates: start: 20150622
  12. PACLITAXEL. [Suspect]
     Active Substance: PACLITAXEL
     Dosage: 250 MG, Q3W
     Route: 042
     Dates: start: 20150713
  13. PACLITAXEL. [Suspect]
     Active Substance: PACLITAXEL
     Dosage: 265 MG, Q3W
     Route: 042
     Dates: start: 20150915, end: 20151008
  14. PACLITAXEL. [Suspect]
     Active Substance: PACLITAXEL
     Dosage: 265 MG, Q3W
     Route: 042
     Dates: start: 20150825
  15. CARBOPLATIN. [Suspect]
     Active Substance: CARBOPLATIN
     Dosage: 470 MG, Q3W
     Route: 042
     Dates: start: 20150713
  16. PACLITAXEL. [Suspect]
     Active Substance: PACLITAXEL
     Dosage: 250 MG, Q3W
     Route: 042
     Dates: start: 20150803
  17. CARBOPLATIN. [Suspect]
     Active Substance: CARBOPLATIN
     Dosage: 382 MG, Q3W
     Route: 042
     Dates: start: 20150915
  18. CARBOPLATIN. [Suspect]
     Active Substance: CARBOPLATIN
     Dosage: 350 MG, Q3W
     Route: 042
     Dates: start: 20151008
  19. PACLITAXEL. [Suspect]
     Active Substance: PACLITAXEL
     Dosage: 265 MG, Q3W
     Route: 042
     Dates: start: 20150803
  20. BEVACIZUMAB. [Suspect]
     Active Substance: BEVACIZUMAB
     Dosage: 1260 MG, Q3W
     Route: 042
     Dates: start: 20150915
  21. CARBOPLATIN. [Suspect]
     Active Substance: CARBOPLATIN
     Indication: OVARIAN EPITHELIAL CANCER
     Dosage: 510 MG, Q3W
     Route: 042
     Dates: start: 20150622
  22. CARBOPLATIN. [Suspect]
     Active Substance: CARBOPLATIN
     Dosage: 265 MG, Q3W
     Route: 042
     Dates: start: 20150825
  23. PACLITAXEL. [Suspect]
     Active Substance: PACLITAXEL
     Dosage: 510 MG, Q3W
     Route: 042
     Dates: start: 20150622, end: 20151008
  24. PACLITAXEL. [Suspect]
     Active Substance: PACLITAXEL
     Dosage: 270 MG, Q3W
     Route: 042
     Dates: start: 20150713
  25. PACLITAXEL. [Suspect]
     Active Substance: PACLITAXEL
     Dosage: 270 MG, Q3W
     Route: 042
     Dates: start: 20151008

REACTIONS (6)
  - Urinary tract infection [Recovered/Resolved]
  - Fall [Unknown]
  - Hypertension [Unknown]
  - Influenza like illness [Recovered/Resolved]
  - Asthenia [Recovered/Resolved]
  - Infection [Recovered/Resolved]

NARRATIVE: CASE EVENT DATE: 20150707
